FAERS Safety Report 10184484 (Version 1)
Quarter: 2014Q2

REPORT INFORMATION
  Report Type: Spontaneous
  Country: US (occurrence: US)
  Receive Date: 20140521
  Receipt Date: 20140521
  Transmission Date: 20141212
  Serious: Yes (Other)
  Sender: FDA-Public Use
  Company Number: US-BIOGENIDEC-2014BI047130

PATIENT
  Age: 67 Year
  Sex: Female

DRUGS (1)
  1. AVONEX [Suspect]
     Indication: MULTIPLE SCLEROSIS
     Route: 030
     Dates: start: 19991116

REACTIONS (3)
  - Cardiac pacemaker insertion [Unknown]
  - Cardiac pacemaker replacement [Recovered/Resolved]
  - Multiple sclerosis relapse [Not Recovered/Not Resolved]
